FAERS Safety Report 8902805 (Version 1)
Quarter: 2012Q4

REPORT INFORMATION
  Report Type: 
  Country: IT (occurrence: IT)
  Receive Date: 20121113
  Receipt Date: 20121113
  Transmission Date: 20130627
  Serious: Yes (Hospitalization)
  Sender: FDA-Public Use
  Company Number: IT-009507513-1211ITA001450

PATIENT
  Age: 67 Year
  Sex: Male

DRUGS (1)
  1. TEMOZOLOMIDE [Suspect]
     Indication: GLIOBLASTOMA
     Dosage: 110 mg, qd
     Route: 048
     Dates: start: 20120901, end: 20120918

REACTIONS (2)
  - Pneumonia aspiration [Recovering/Resolving]
  - Pancytopenia [Recovering/Resolving]
